FAERS Safety Report 21322613 (Version 1)
Quarter: 2022Q3

REPORT INFORMATION
  Report Type: Spontaneous
  Country: US (occurrence: US)
  Receive Date: 20220912
  Receipt Date: 20220912
  Transmission Date: 20221027
  Serious: Yes (Other)
  Sender: FDA-Public Use
  Company Number: US-009507513-2209USA002633

PATIENT
  Age: 31 Year
  Sex: Female

DRUGS (2)
  1. CUBICIN [Suspect]
     Active Substance: DAPTOMYCIN
     Indication: Cryoglobulinaemia
     Dosage: UNK
     Route: 042
     Dates: start: 2022
  2. CEFTAROLINE [Concomitant]
     Active Substance: CEFTAROLINE
     Indication: Cryoglobulinaemia
     Dosage: UNK
     Dates: start: 2022

REACTIONS (2)
  - Acute generalised exanthematous pustulosis [Unknown]
  - Impaired healing [Recovering/Resolving]

NARRATIVE: CASE EVENT DATE: 20220101
